FAERS Safety Report 6547462-1 (Version None)
Quarter: 2010Q1

REPORT INFORMATION
  Report Type: 
  Country: None (occurrence: None)
  Receive Date: 20100122
  Receipt Date: 20100114
  Transmission Date: 20100710
  Serious: Yes (Hospitalization)
  Sender: FDA-Public Use
  Company Number: US-MPIJNJ-2010-00804

PATIENT
  Sex: Male

DRUGS (21)
  1. VELCADE [Suspect]
     Indication: KIDNEY TRANSPLANT REJECTION
     Dosage: 1.3 MG/M2, UNK
     Route: 040
     Dates: start: 20091211, end: 20091221
  2. VELCADE [Suspect]
     Indication: PANCREAS TRANSPLANT REJECTION
  3. THYMOGLOBULIN [Suspect]
     Indication: KIDNEY TRANSPLANT REJECTION
     Dosage: 1.5 MG/KG, UNK
     Route: 042
     Dates: start: 20091211, end: 20091218
  4. THYMOGLOBULIN [Suspect]
     Indication: PANCREAS TRANSPLANT REJECTION
  5. ASPIRIN [Concomitant]
     Indication: DRUG USE FOR UNKNOWN INDICATION
  6. NEURONTIN [Concomitant]
     Indication: DRUG USE FOR UNKNOWN INDICATION
  7. METOPROLOL TARTRATE [Concomitant]
     Indication: DRUG USE FOR UNKNOWN INDICATION
  8. MECLOFENAMIC ACID [Concomitant]
     Indication: DRUG USE FOR UNKNOWN INDICATION
  9. NYSTATIN [Concomitant]
     Indication: DRUG USE FOR UNKNOWN INDICATION
  10. OMEPRAZOLE [Concomitant]
     Indication: DRUG USE FOR UNKNOWN INDICATION
  11. ZOFRAN [Concomitant]
     Indication: DRUG USE FOR UNKNOWN INDICATION
  12. PREDNISONE [Concomitant]
     Indication: DRUG USE FOR UNKNOWN INDICATION
  13. PHENERGAN HCL [Concomitant]
     Indication: DRUG USE FOR UNKNOWN INDICATION
  14. ZOCOR [Concomitant]
     Indication: DRUG USE FOR UNKNOWN INDICATION
  15. BACTRIM [Concomitant]
     Indication: DRUG USE FOR UNKNOWN INDICATION
  16. TACROLIMUS [Concomitant]
     Indication: DRUG USE FOR UNKNOWN INDICATION
  17. FLOMAX [Concomitant]
     Indication: DRUG USE FOR UNKNOWN INDICATION
  18. VALCYTE [Concomitant]
     Indication: DRUG USE FOR UNKNOWN INDICATION
  19. PERCOCET [Concomitant]
     Indication: DRUG USE FOR UNKNOWN INDICATION
  20. CIPRO                              /00697201/ [Concomitant]
     Indication: DRUG USE FOR UNKNOWN INDICATION
  21. IMODIUM                            /00384302/ [Concomitant]
     Indication: DRUG USE FOR UNKNOWN INDICATION

REACTIONS (1)
  - PYELONEPHRITIS [None]
